FAERS Safety Report 10803970 (Version 2)
Quarter: 2015Q4

REPORT INFORMATION
  Report Type: Report from Study
  Country: BR (occurrence: BR)
  Receive Date: 20150217
  Receipt Date: 20151106
  Transmission Date: 20160304
  Serious: Yes (Other)
  Sender: FDA-Public Use
  Company Number: PHHY2015BR013208

PATIENT
  Sex: Female
  Weight: 59 kg

DRUGS (1)
  1. ACLASTA [Suspect]
     Active Substance: ZOLEDRONIC ACID
     Indication: OSTEOPOROSIS
     Dosage: 5 MG, QMO (RECEIVED AT 10 AM)
     Route: 042
     Dates: start: 201411

REACTIONS (21)
  - Nail disorder [Recovering/Resolving]
  - Pain [Recovered/Resolved]
  - Urticaria [Recovered/Resolved]
  - Dysentery [Recovered/Resolved]
  - Ocular hyperaemia [Recovered/Resolved]
  - Skin disorder [Recovering/Resolving]
  - Paraesthesia [Recovered/Resolved]
  - Headache [Recovered/Resolved]
  - Pharyngeal disorder [Recovered/Resolved]
  - Vitamin D increased [Unknown]
  - Chills [Recovered/Resolved]
  - Asthenia [Recovered/Resolved]
  - Skin hypertrophy [Recovering/Resolving]
  - Eye pain [Recovered/Resolved]
  - Alopecia [Recovering/Resolving]
  - Dysphagia [Recovered/Resolved]
  - Drug hypersensitivity [Recovering/Resolving]
  - Weight decreased [Recovered/Resolved]
  - Decreased appetite [Recovered/Resolved]
  - Pyrexia [Recovered/Resolved]
  - Retching [Recovered/Resolved]
